FAERS Safety Report 7545953-8 (Version None)
Quarter: 2011Q2

REPORT INFORMATION
  Report Type: 
  Country: None (occurrence: None)
  Receive Date: 20110614
  Receipt Date: 20110531
  Transmission Date: 20111010
  Serious: Yes (Life-Threatening, Hospitalization, Other)
  Sender: FDA-Public Use
  Company Number: PHHY2011IN47172

PATIENT
  Age: 55 Year
  Sex: Female

DRUGS (2)
  1. METOPROLOL TARTRATE [Suspect]
     Dosage: 50 MG, UNK
  2. VERAPAMIL [Concomitant]
     Dosage: 40 MG, UNK

REACTIONS (20)
  - COMA SCALE ABNORMAL [None]
  - DISORIENTATION [None]
  - ATRIOVENTRICULAR BLOCK SECOND DEGREE [None]
  - HAEMODYNAMIC INSTABILITY [None]
  - BRADYCARDIA [None]
  - HEART RATE IRREGULAR [None]
  - PERIPHERAL COLDNESS [None]
  - OPTIC ISCHAEMIC NEUROPATHY [None]
  - BLINDNESS [None]
  - HYPOPERFUSION [None]
  - OPTIC DISCS BLURRED [None]
  - BLOOD PRESSURE SYSTOLIC DECREASED [None]
  - OVERDOSE [None]
  - VISUAL ACUITY REDUCED [None]
  - VISUAL FIELD DEFECT [None]
  - MYDRIASIS [None]
  - LETHARGY [None]
  - METABOLIC ACIDOSIS [None]
  - SUICIDE ATTEMPT [None]
  - COLD SWEAT [None]
